FAERS Safety Report 9131436 (Version 2)
Quarter: 2013Q1

REPORT INFORMATION
  Report Type: Spontaneous
  Country: FR (occurrence: IT)
  Receive Date: 20130301
  Receipt Date: 20130311
  Transmission Date: 20140127
  Serious: Yes (Other)
  Sender: FDA-Public Use
  Company Number: FR-OTSUKA-US-2013-10342

PATIENT
  Sex: Female

DRUGS (12)
  1. BUSULFEX [Suspect]
     Indication: ALLOGENIC BONE MARROW TRANSPLANTATION THERAPY
     Dosage: 3.2 MG/KG, UNK
     Route: 042
     Dates: start: 20101014, end: 20101016
  2. THIOTEPA [Suspect]
     Indication: ALLOGENIC BONE MARROW TRANSPLANTATION THERAPY
     Dosage: 5 MG/KG, UNK
     Route: 065
     Dates: start: 20101012, end: 20101013
  3. FLUDARABINE PHOSPHATE [Suspect]
     Indication: ALLOGENIC BONE MARROW TRANSPLANTATION THERAPY
     Dosage: 50 MCG/M2, UNKNOWN
     Route: 065
     Dates: start: 20101014, end: 20101016
  4. CYCLOPHOSPHAMIDE MONOHYDRATE [Concomitant]
     Dosage: UNK
     Dates: start: 20101021, end: 20101023
  5. CICLOSPORIN [Concomitant]
     Dosage: UNK
     Dates: start: 20101018
  6. MYCOPHENOLATE MOFETIL [Concomitant]
     Dosage: UNK
     Dates: start: 20101019
  7. GRANULOCYTE COLONY STIMULATING FACTOR [Concomitant]
     Dosage: UNK
     Dates: start: 20101023
  8. MENSALGIN [Concomitant]
     Dosage: UNK
     Dates: start: 20101021, end: 20101025
  9. PHENYTOIN SODIUM [Concomitant]
     Dosage: UNK
     Dates: start: 20101014, end: 20101016
  10. ACICLOVIR [Concomitant]
  11. FLUCONAZOLE [Concomitant]
  12. LEVOFLOXACIN [Concomitant]

REACTIONS (2)
  - Cystitis haemorrhagic [Recovered/Resolved]
  - Pericarditis [Unknown]
